FAERS Safety Report 10039418 (Version 3)
Quarter: 2014Q2

REPORT INFORMATION
  Report Type: Spontaneous
  Country: US (occurrence: US)
  Receive Date: 20140326
  Receipt Date: 20140515
  Transmission Date: 20141212
  Serious: Yes (Other)
  Sender: FDA-Public Use
  Company Number: US-FRI-1000065844

PATIENT
  Age: 71 Year
  Sex: Female
  Weight: 68 kg

DRUGS (3)
  1. BYSTOLIC [Suspect]
     Indication: HYPERTROPHIC CARDIOMYOPATHY
     Dosage: 2.5MG
     Route: 048
     Dates: start: 20140210, end: 20140304
  2. PRAVASTATIN [Concomitant]
     Indication: BLOOD CHOLESTEROL INCREASED
     Dosage: 40MG
  3. LOSARTAN [Concomitant]
     Indication: HYPERTENSION
     Dosage: DAILY

REACTIONS (9)
  - Cardiac failure congestive [Recovered/Resolved]
  - Weight increased [Recovered/Resolved]
  - Off label use [Recovered/Resolved]
  - Hepatic enzyme increased [Recovered/Resolved]
  - Blood pressure increased [Recovered/Resolved]
  - Chest discomfort [Recovered/Resolved]
  - Dyspnoea [Recovered/Resolved]
  - Rash [Recovered/Resolved]
  - Limb discomfort [Recovered/Resolved]
